APPROVED DRUG PRODUCT: NEOMYCIN SULFATE
Active Ingredient: NEOMYCIN SULFATE
Strength: 500MG
Dosage Form/Route: TABLET;ORAL
Application: A065468 | Product #001
Applicant: PHARMOBEDIENT CONSULTING LLC
Approved: Mar 29, 2010 | RLD: No | RS: No | Type: DISCN